FAERS Safety Report 8256900-8 (Version None)
Quarter: 2012Q1

REPORT INFORMATION
  Report Type: 
  Country: None (occurrence: None)
  Receive Date: 20120322
  Receipt Date: 20120215
  Transmission Date: 20120608
  Serious: Yes (Other)
  Sender: FDA-Public Use
  Company Number: UTC-015657

PATIENT
  Age: 55 Year
  Sex: Male
  Weight: 114 kg

DRUGS (2)
  1. TYVASO [Suspect]
     Indication: COR PULMONALE CHRONIC
     Dosage: 72 MCG, (18 MCG, 4 IN 1 D) , INHALATION
     Route: 055
     Dates: start: 20120118
  2. REVATIO [Concomitant]

REACTIONS (4)
  - WEIGHT INCREASED [None]
  - ABDOMINAL DISTENSION [None]
  - GALLBLADDER DISORDER [None]
  - ABDOMINAL PAIN UPPER [None]
